FAERS Safety Report 5292668-5 (Version None)
Quarter: 2007Q2

REPORT INFORMATION
  Report Type: 
  Country: None (occurrence: None)
  Receive Date: 20070404
  Receipt Date: 20070322
  Transmission Date: 20071010
  Serious: Yes (Death, Disabling)
  Sender: FDA-Public Use
  Company Number: 2007S1001521

PATIENT
  Age: 89 Year
  Sex: Female

DRUGS (1)
  1. CLONIDINE HYDROCHLORIDE [Suspect]
     Indication: HYPERTENSION
     Dosage: DAILY; ORAL
     Route: 048

REACTIONS (2)
  - ANHEDONIA [None]
  - APHONIA [None]
